FAERS Safety Report 9619675 (Version 2)
Quarter: 2013Q4

REPORT INFORMATION
  Report Type: Spontaneous
  Country: US (occurrence: US)
  Receive Date: 20131014
  Receipt Date: 20131104
  Transmission Date: 20140711
  Serious: Yes (Death, Hospitalization, Other)
  Sender: FDA-Public Use
  Company Number: US-ELI_LILLY_AND_COMPANY-US201310002401

PATIENT
  Age: 88 Year
  Sex: Female

DRUGS (1)
  1. FORTEO [Suspect]
     Indication: PRODUCT USED FOR UNKNOWN INDICATION
     Dosage: UNK UNK, UNKNOWN
     Route: 065
     Dates: start: 201207

REACTIONS (12)
  - Cardiac arrest [Fatal]
  - Fall [Unknown]
  - Clavicle fracture [Unknown]
  - Lymphoma [Unknown]
  - Overdose [Unknown]
  - Wrong technique in drug usage process [Unknown]
  - Chest pain [Unknown]
  - Blood albumin decreased [Unknown]
  - Blood phosphorus decreased [Unknown]
  - Blood calcium increased [Unknown]
  - Hypotension [Unknown]
  - Nausea [Unknown]
